FAERS Safety Report 9993018 (Version 1)
Quarter: 2014Q1

REPORT INFORMATION
  Report Type: Spontaneous
  Country: US (occurrence: US)
  Receive Date: 20140310
  Receipt Date: 20140310
  Transmission Date: 20141002
  Serious: No
  Sender: FDA-Public Use
  Company Number: US-ABBVIE-13P-163-1159450-00

PATIENT
  Age: 25 Year
  Sex: Female
  Weight: 73.55 kg

DRUGS (6)
  1. LUPRON DEPOT [Suspect]
     Indication: ENDOMETRIOSIS
     Route: 030
     Dates: start: 20130419
  2. ALBUTEROL [Concomitant]
     Indication: ASTHMA
  3. COMBIVENT [Concomitant]
     Indication: ASTHMA
  4. DEPO PROVERA [Concomitant]
     Indication: MENSTRUAL DISORDER
  5. FLONASE [Concomitant]
     Indication: HYPERSENSITIVITY
  6. SINGULAIR [Concomitant]
     Indication: HYPERSENSITIVITY

REACTIONS (4)
  - Injection site nodule [Recovering/Resolving]
  - Injection site discomfort [Recovering/Resolving]
  - Injection site induration [Recovering/Resolving]
  - Injection site warmth [Recovering/Resolving]
